FAERS Safety Report 25686381 (Version 2)
Quarter: 2025Q3

REPORT INFORMATION
  Report Type: Spontaneous
  Country: JP (occurrence: JP)
  Receive Date: 20250815
  Receipt Date: 20250904
  Transmission Date: 20251020
  Serious: Yes (Other)
  Sender: MERCK SHARP & DOHME LLC
  Company Number: JP-009507513-2319467

PATIENT
  Age: 68 Year
  Sex: Male

DRUGS (7)
  1. CASPOFUNGIN ACETATE [Suspect]
     Active Substance: CASPOFUNGIN ACETATE
     Indication: Fungal infection
  2. VFEND [Suspect]
     Active Substance: VORICONAZOLE
     Indication: Fungal infection
  3. VFEND [Suspect]
     Active Substance: VORICONAZOLE
     Indication: Trichosporon infection
  4. AMPHOTERICIN B [Suspect]
     Active Substance: AMPHOTERICIN B
     Indication: Fungal infection
  5. MEROPENEM [Concomitant]
     Active Substance: MEROPENEM
  6. DAPTOMYCIN [Concomitant]
     Active Substance: DAPTOMYCIN
  7. PREDNISOLONE [Concomitant]
     Active Substance: PREDNISOLONE

REACTIONS (1)
  - Drug ineffective [Unknown]
